FAERS Safety Report 7593850-4 (Version None)
Quarter: 2011Q3

REPORT INFORMATION
  Report Type: 
  Country: None (occurrence: None)
  Receive Date: 20110706
  Receipt Date: 20110704
  Transmission Date: 20111222
  Serious: Yes (Other)
  Sender: FDA-Public Use
  Company Number: JP-PFIZER INC-2011149114

PATIENT
  Age: 85 Year
  Sex: Male

DRUGS (5)
  1. LYRICA [Suspect]
     Indication: PAIN
     Dosage: 2 DF DAILY
     Route: 048
     Dates: start: 20110618, end: 20110625
  2. LOXONIN [Concomitant]
     Indication: PAIN
     Dosage: UNK
     Dates: start: 20110618, end: 20110625
  3. CLEANAL [Concomitant]
  4. NITROL [Concomitant]
  5. LITHIUM [Concomitant]

REACTIONS (2)
  - PYREXIA [None]
  - NEUTROPENIA [None]
